FAERS Safety Report 5039238-1 (Version None)
Quarter: 2006Q2

REPORT INFORMATION
  Report Type: 
  Country: None (occurrence: None)
  Receive Date: 20060626
  Receipt Date: 20060609
  Transmission Date: 20061013
  Serious: Yes (Death)
  Sender: FDA-Public Use
  Company Number: L06-USA-02351-01

PATIENT
  Age: 45 Year
  Sex: Male

DRUGS (11)
  1. CARBAMAZEPINE [Suspect]
  2. TEMOZOLOMIDE [Suspect]
     Indication: GLIOBLASTOMA MULTIFORME
  3. PHENYTOIN [Suspect]
  4. RADIOTHERAPY [Suspect]
     Indication: GLIOBLASTOMA MULTIFORME
  5. ONDANSETRON HCL [Suspect]
  6. PROCHLORPERAZINE [Suspect]
  7. PARACETAMOL [Suspect]
  8. RANITIDINE [Suspect]
  9. DEXAMETHASONE [Suspect]
  10. PENTAMIDINE ISETHIONATE [Suspect]
     Indication: ANTIBIOTIC PROPHYLAXIS
     Dosage: 300 MG DAILY IH
     Route: 055
  11. GABAPENTIN [Suspect]

REACTIONS (9)
  - APLASTIC ANAEMIA [None]
  - BONE MARROW FAILURE [None]
  - CYTOMEGALOVIRUS VIRAEMIA [None]
  - HAEMATOTOXICITY [None]
  - MALAISE [None]
  - MYELITIS TRANSVERSE [None]
  - PARAPLEGIA [None]
  - STEM CELL TRANSPLANT [None]
  - WEIGHT DECREASED [None]
